FAERS Safety Report 7391606-9 (Version None)
Quarter: 2011Q2

REPORT INFORMATION
  Report Type: 
  Country: None (occurrence: None)
  Receive Date: 20110404
  Receipt Date: 20110331
  Transmission Date: 20111010
  Serious: Yes (Death, Other)
  Sender: FDA-Public Use
  Company Number: PHHY2009DE37323

PATIENT
  Sex: Female

DRUGS (1)
  1. LOPRESSOR [Suspect]

REACTIONS (5)
  - SPINAL HAEMATOMA [None]
  - COMA [None]
  - BRADYCARDIA [None]
  - VAGINAL HAEMORRHAGE [None]
  - HYPOTENSION [None]
